FAERS Safety Report 5102058-3 (Version None)
Quarter: 2006Q3

REPORT INFORMATION
  Report Type: 
  Country: None (occurrence: None)
  Receive Date: 20060907
  Receipt Date: 20051215
  Transmission Date: 20061208
  Serious: Yes (Hospitalization)
  Sender: FDA-Public Use
  Company Number: 2005-12-0853

PATIENT
  Age: 65 Year
  Sex: Male
  Weight: 66 kg

DRUGS (4)
  1. DACARBAZINE [Suspect]
     Indication: METASTATIC MALIGNANT MELANOMA
     Dosage: 1730 MG INTRAVENOUS
     Route: 042
     Dates: start: 20051010, end: 20051212
  2. NEXIUM [Concomitant]
  3. ATIVAN [Concomitant]
  4. EMEND [Concomitant]

REACTIONS (31)
  - ABDOMINAL ABSCESS [None]
  - ABDOMINAL DISTENSION [None]
  - ABDOMINAL PAIN LOWER [None]
  - ABDOMINAL TENDERNESS [None]
  - ABSCESS [None]
  - ABSCESS INTESTINAL [None]
  - BACK PAIN [None]
  - COLONIC OBSTRUCTION [None]
  - DIVERTICULITIS [None]
  - FISTULA [None]
  - FLATULENCE [None]
  - GASTROINTESTINAL DISORDER [None]
  - GASTROINTESTINAL INFLAMMATION [None]
  - GASTROINTESTINAL OEDEMA [None]
  - ILEUS [None]
  - INDURATION [None]
  - INFLAMMATION [None]
  - INTERSTITIAL LUNG DISEASE [None]
  - INTESTINAL FISTULA [None]
  - INTESTINAL OBSTRUCTION [None]
  - INTESTINAL PERFORATION [None]
  - LUNG DISORDER [None]
  - NAUSEA [None]
  - NEPHROLITHIASIS [None]
  - PELVIC FLUID COLLECTION [None]
  - PELVIC INFLAMMATORY DISEASE [None]
  - RENAL CYST [None]
  - SMALL INTESTINAL OBSTRUCTION [None]
  - URETERIC OBSTRUCTION [None]
  - VOMITING [None]
  - WHITE BLOOD CELL COUNT INCREASED [None]
